FAERS Safety Report 18392374 (Version 1)
Quarter: 2020Q4

REPORT INFORMATION
  Report Type: Spontaneous
  Country: US (occurrence: US)
  Receive Date: 20201016
  Receipt Date: 20201016
  Transmission Date: 20210114
  Serious: Yes (Other)
  Sender: FDA-Public Use
  Company Number: None

PATIENT
  Age: 73 Year
  Sex: Female
  Weight: 75.6 kg

DRUGS (11)
  1. PIQRAY [Suspect]
     Active Substance: ALPELISIB
     Indication: BREAST CANCER
     Route: 048
     Dates: start: 20200612
  2. ALBUTEROL SULFATE. [Concomitant]
     Active Substance: ALBUTEROL SULFATE
  3. XANAX [Concomitant]
     Active Substance: ALPRAZOLAM
  4. CALCIUM-MAGNESIUM-ZINC-D3 [Concomitant]
  5. ELIQUIS [Concomitant]
     Active Substance: APIXABAN
  6. PIQRAY [Suspect]
     Active Substance: ALPELISIB
     Indication: BONE CANCER
     Route: 048
     Dates: start: 20200612
  7. FERRO-SEQUELS [Concomitant]
     Active Substance: DOCUSATE SODIUM\FERROUS FUMARATE
  8. LETROZOLE. [Concomitant]
     Active Substance: LETROZOLE
  9. PREDNISONE. [Concomitant]
     Active Substance: PREDNISONE
  10. PROAIR HFA [Concomitant]
     Active Substance: ALBUTEROL SULFATE
  11. VITAMIN D2 [Concomitant]
     Active Substance: ERGOCALCIFEROL

REACTIONS (2)
  - Urinary tract infection [None]
  - Blood glucose increased [None]

NARRATIVE: CASE EVENT DATE: 20201016
